FAERS Safety Report 23527546 (Version 3)
Quarter: 2024Q3

REPORT INFORMATION
  Report Type: Spontaneous
  Country: US (occurrence: US)
  Receive Date: 20240215
  Receipt Date: 20240722
  Transmission Date: 20241017
  Serious: No
  Sender: SANOFI AVENTIS
  Company Number: US-SA-SAC20240213001152

PATIENT
  Age: 64 Year
  Sex: Female

DRUGS (2)
  1. DUPIXENT [Suspect]
     Active Substance: DUPILUMAB
     Indication: Dermatitis atopic
     Dosage: 300 MG, QOW
     Route: 058
  2. FISH OIL [Concomitant]
     Active Substance: FISH OIL

REACTIONS (11)
  - Neck pain [Unknown]
  - Arthropathy [Unknown]
  - Dry skin [Unknown]
  - Skin haemorrhage [Unknown]
  - Scratch [Unknown]
  - Pruritus [Unknown]
  - Sinusitis [Unknown]
  - Rhinorrhoea [Unknown]
  - Skin exfoliation [Unknown]
  - Rash [Unknown]
  - Drug ineffective [Unknown]

NARRATIVE: CASE EVENT DATE: 20240601
